FAERS Safety Report 4699095-X (Version None)
Quarter: 2005Q2

REPORT INFORMATION
  Report Type: 
  Country: None (occurrence: None)
  Receive Date: 20050622
  Receipt Date: 20050610
  Transmission Date: 20051028
  Serious: Yes (Hospitalization)
  Sender: FDA-Public Use
  Company Number: 2005087880

PATIENT
  Age: 73 Year
  Sex: Male

DRUGS (11)
  1. AMLODIPINE [Suspect]
     Indication: ILL-DEFINED DISORDER
     Dosage: 5 MG (5 MG, DAILY), ORAL
     Route: 048
  2. SALBUTAMOL (SULBUTAMOL) [Suspect]
     Indication: ILL-DEFINED DISORDER
  3. ALPRAZOLAM [Suspect]
     Indication: ILL-DEFINED DISORDER
  4. FLUTCASONE/SALMETEROL (FLUTICASONE PROPIONATE, SALMETEROL XINAFOATE) [Suspect]
     Indication: ILL-DEFINED DISORDER
  5. CLOPIDOGREL (CLOPIDOGREL SULFATE) [Suspect]
     Indication: ILL-DEFINED DISORDER
     Dosage: 75 MG (75 MG, DAILY), ORAL
     Route: 048
  6. AMIDARONE (AMIODARONE HYDROCHLORIDE) [Suspect]
     Indication: ILL-DEFINED DISORDER
     Dosage: ORAL
     Route: 048
  7. BCG (BCG VACCINE) [Suspect]
     Indication: ILL-DEFINED DISORDER
     Dosage: 1 DOSE FORM (WEEKLY)
     Dates: start: 20050307, end: 20050418
  8. PRAVASTATIN SODIUM [Suspect]
     Indication: ILL-DEFINED DISORDER
     Dosage: 20 MG (20 MG, DAILY), ORAL
     Route: 048
  9. LANSOPRAZOLE [Suspect]
     Indication: ILL-DEFINED DISORDER
     Dosage: 15 MG (15 MG, DAILY), ORAL
     Route: 048
  10. LINSIDOMINE (MOLSIDOMINE) [Suspect]
     Indication: ILL-DEFINED DISORDER
  11. ZOLPIDEM TARTRATE [Suspect]
     Indication: ILL-DEFINED DISORDER

REACTIONS (11)
  - DRUG INEFFECTIVE [None]
  - HYDRONEPHROSIS [None]
  - HYPOALBUMINAEMIA [None]
  - HYPOXIA [None]
  - LEUKOCYTOSIS [None]
  - LUNG DISORDER [None]
  - NEUTROPHIL COUNT INCREASED [None]
  - PYREXIA [None]
  - RESPIRATORY FAILURE [None]
  - SCAR [None]
  - URETHRAL MEATUS STENOSIS [None]
